FAERS Safety Report 9808753 (Version 3)
Quarter: 2014Q1

REPORT INFORMATION
  Report Type: Report from Study
  Country: AU (occurrence: AU)
  Receive Date: 20140110
  Receipt Date: 20140311
  Transmission Date: 20141002
  Serious: Yes (Other)
  Sender: FDA-Public Use
  Company Number: AU-INCYTE CORPORATION-2014IN000029

PATIENT
  Age: 49 Year
  Sex: Male

DRUGS (3)
  1. JAKAVI [Suspect]
     Indication: MYELOFIBROSIS
     Dosage: UNK UNK, UNK
     Route: 065
  2. ACETYLSALICYLIC ACID [Suspect]
     Dosage: UNK, UNK, UNK
     Route: 065
  3. ACETYLSALICYLIC ACID [Suspect]
     Dosage: UNK, UNK, UNK
     Route: 065

REACTIONS (4)
  - Palmar-plantar erythrodysaesthesia syndrome [Recovering/Resolving]
  - Lymphopenia [Recovering/Resolving]
  - Erythromelalgia [Unknown]
  - Platelet count decreased [Recovering/Resolving]
